FAERS Safety Report 9163168 (Version 1)
Quarter: 2013Q1

REPORT INFORMATION
  Report Type: Spontaneous
  Country: US (occurrence: None)
  Receive Date: 20130225
  Receipt Date: 20130225
  Transmission Date: 20140127
  Serious: Yes (Other)
  Sender: FDA-Public Use
  Company Number: 2013-02850

PATIENT
  Sex: Female

DRUGS (3)
  1. VINORELBINE [Suspect]
     Indication: LUNG NEOPLASM MALIGNANT
  2. CISPLATIN (CISPLATIN) (5 MILLIGRAM) (CISPLATIN) [Suspect]
     Indication: LUNG NEOPLASM MALIGNANT
  3. VINCRISTINE (VINCRISTINE) (UNKNOWN) [Suspect]
     Indication: LUNG NEOPLASM MALIGNANT

REACTIONS (3)
  - Placental infarction [None]
  - Premature baby [None]
  - Maternal drugs affecting foetus [None]
